FAERS Safety Report 6618060-6 (Version None)
Quarter: 2010Q1

REPORT INFORMATION
  Report Type: 
  Country: None (occurrence: None)
  Receive Date: 20100223
  Receipt Date: 20091113
  Transmission Date: 20100710
  Serious: Yes (Other)
  Sender: FDA-Public Use
  Company Number: 8054957

PATIENT
  Sex: Female

DRUGS (1)
  1. CERTOLIZUMAB PEGOL (UCB, INC) [Suspect]
     Dosage: (200 MG, 1X/2 WEEKS, EVERY TWO WEEKS SUBCUTANEOUS)
     Route: 058
     Dates: start: 20090314

REACTIONS (2)
  - FIBROMYALGIA [None]
  - THROMBOCYTOSIS [None]
